FAERS Safety Report 8355366-7 (Version None)
Quarter: 2012Q2

REPORT INFORMATION
  Report Type: 
  Country: None (occurrence: None)
  Receive Date: 20120511
  Receipt Date: 20120503
  Transmission Date: 20120825
  Serious: Yes (Death)
  Sender: FDA-Public Use
  Company Number: US-ROCHE-1056361

PATIENT
  Sex: Male

DRUGS (2)
  1. AVASTIN [Suspect]
     Indication: MACULAR OEDEMA
     Dosage: RECEIVED ONCE
     Dates: start: 20120301
  2. LUCENTIS [Suspect]
     Indication: MACULAR OEDEMA
     Dosage: RECEIVED ONCE
     Route: 065
     Dates: start: 20120127

REACTIONS (1)
  - DEATH [None]
